FAERS Safety Report 16649345 (Version 1)
Quarter: 2019Q3

REPORT INFORMATION
  Report Type: Spontaneous
  Country: GB (occurrence: GB)
  Receive Date: 20190730
  Receipt Date: 20190730
  Transmission Date: 20191004
  Serious: Yes (Hospitalization)
  Sender: FDA-Public Use
  Company Number: GB-TEVA-2019-GB-1084240

PATIENT
  Age: 73 Year
  Sex: Male

DRUGS (11)
  1. NAPROXEN. [Concomitant]
     Active Substance: NAPROXEN
     Indication: ANALGESIC THERAPY
     Route: 065
  2. OXYCODONE (MODIFIED RELEASE) [Suspect]
     Active Substance: OXYCODONE
     Indication: ANALGESIC THERAPY
     Route: 065
  3. OXYCODONE (MODIFIED RELEASE) [Suspect]
     Active Substance: OXYCODONE
     Dosage: ON DAY 3 OF ADMISSION
     Route: 065
  4. OXYCODONE (MODIFIED RELEASE) [Suspect]
     Active Substance: OXYCODONE
     Dosage: 80 MILLIGRAM DAILY;
     Route: 065
  5. OXYCODONE (IMMEDIATE RELEASE) [Suspect]
     Active Substance: OXYCODONE
     Indication: ANALGESIC THERAPY
     Dosage: AS REQUIRED
     Route: 065
  6. LIDOCAINE. [Concomitant]
     Active Substance: LIDOCAINE
     Indication: ANALGESIC THERAPY
     Dosage: FORMULATION: PLASTER (ON THE DAY OF ADMISSION)
     Route: 065
  7. OXYCODONE (MODIFIED RELEASE) [Suspect]
     Active Substance: OXYCODONE
     Dosage: NEXT DAY OF ADMISSION
     Route: 065
  8. PREGABALIN. [Concomitant]
     Active Substance: PREGABALIN
     Indication: ANALGESIC THERAPY
     Route: 065
  9. MAGNESIUM [Concomitant]
     Active Substance: MAGNESIUM
     Indication: MINERAL SUPPLEMENTATION
     Dosage: ON DAY 2 OF THE ADMISSION
     Route: 042
  10. PARACETAMOL [Concomitant]
     Active Substance: ACETAMINOPHEN
     Indication: ANALGESIC THERAPY
     Dosage: AS REQUIRED UP TO FOUR TIMES PER DAY
     Route: 065
  11. OXYCODONE (IMMEDIATE RELEASE) [Suspect]
     Active Substance: OXYCODONE
     Indication: ANALGESIC THERAPY
     Dosage: FROM DAYS 1 TO 3 OF ADMISSION; THREE BREAKTHROUGH DOSES
     Route: 065

REACTIONS (2)
  - Toxicity to various agents [Recovered/Resolved]
  - Nausea [Unknown]
